FAERS Safety Report 20059048 (Version 1)
Quarter: 2021Q4

REPORT INFORMATION
  Report Type: Spontaneous
  Country: US (occurrence: US)
  Receive Date: 20211111
  Receipt Date: 20211111
  Transmission Date: 20220304
  Serious: Yes (Other)
  Sender: FDA-Public Use
  Company Number: US-Aytu BioPharma, Inc.-2021-AYT-00002

PATIENT
  Age: 15 Year
  Sex: Male

DRUGS (1)
  1. COTEMPLA XR-ODT [Suspect]
     Active Substance: METHYLPHENIDATE
     Indication: Attention deficit hyperactivity disorder
     Route: 048
     Dates: start: 201811

REACTIONS (7)
  - Cartilage atrophy [Unknown]
  - Osteonecrosis [Unknown]
  - Osteochondrosis [Unknown]
  - Joint swelling [Unknown]
  - Joint effusion [Unknown]
  - Pain in extremity [Unknown]
  - Arthralgia [Unknown]

NARRATIVE: CASE EVENT DATE: 20190101
